FAERS Safety Report 5765029-X (Version None)
Quarter: 2008Q2

REPORT INFORMATION
  Report Type: 
  Country: None (occurrence: None)
  Receive Date: 20080611
  Receipt Date: 20080603
  Transmission Date: 20081010
  Serious: Yes (Hospitalization)
  Sender: FDA-Public Use
  Company Number: JP-ASTRAZENECA-2008AP03932

PATIENT
  Age: 26372 Day
  Sex: Male

DRUGS (2)
  1. CRESTOR [Suspect]
     Indication: HYPERLIPIDAEMIA
     Route: 048
     Dates: start: 20080417, end: 20080423
  2. ADALAT [Concomitant]
     Indication: HYPERTENSION
     Route: 048
     Dates: start: 20080403, end: 20080423

REACTIONS (4)
  - DIZZINESS [None]
  - DRUG ERUPTION [None]
  - MALAISE [None]
  - PHOTOSENSITIVITY REACTION [None]
